FAERS Safety Report 10184987 (Version 1)
Quarter: 2014Q2

REPORT INFORMATION
  Report Type: Spontaneous
  Country: GB (occurrence: None)
  Receive Date: 20140519
  Receipt Date: 20140519
  Transmission Date: 20141212
  Serious: Yes (Hospitalization, Other)
  Sender: FDA-Public Use
  Company Number: AUR-APL-2014-05594

PATIENT
  Age: 21 Year
  Sex: Female
  Weight: 84 kg

DRUGS (6)
  1. CITALOPRAM [Suspect]
     Indication: DEPRESSION
     Dates: start: 201302
  2. QUETIAPINE [Suspect]
     Indication: PRODUCT USED FOR UNKNOWN INDICATION
     Dates: start: 201311, end: 201401
  3. RISPERIDONE [Suspect]
     Indication: AGITATION
     Dosage: 0.5 MG 2 IN 1 D
     Dates: start: 201310
  4. STRATTERA [Suspect]
     Indication: ATTENTION DEFICIT/HYPERACTIVITY DISORDER
     Route: 048
     Dates: start: 20121002
  5. CIRCADIN [Concomitant]
  6. SERTRALINE (SERTRALINE) [Concomitant]

REACTIONS (15)
  - Somnolence [None]
  - Obsessive rumination [None]
  - Agitation [None]
  - Major depression [None]
  - Treatment noncompliance [None]
  - Affective disorder [None]
  - Sedation [None]
  - Irritability [None]
  - Impulsive behaviour [None]
  - Paranoia [None]
  - Disease recurrence [None]
  - Drug resistance [None]
  - Inappropriate affect [None]
  - Abnormal behaviour [None]
  - Depression [None]
